FAERS Safety Report 8170701-0 (Version None)
Quarter: 2012Q1

REPORT INFORMATION
  Report Type: 
  Country: None (occurrence: None)
  Receive Date: 20120228
  Receipt Date: 20120222
  Transmission Date: 20120608
  Serious: Yes (Life-Threatening)
  Sender: FDA-Public Use
  Company Number: JP-ELI_LILLY_AND_COMPANY-JP201201003255

PATIENT
  Sex: Male
  Weight: 70 kg

DRUGS (6)
  1. METHYCOBAL [Concomitant]
     Dosage: 1000 UNK, UNK
     Route: 030
     Dates: start: 20111228
  2. ALIMTA [Suspect]
     Indication: LUNG ADENOCARCINOMA STAGE IV
     Dosage: 800 MG, UNK
     Route: 042
     Dates: start: 20120104, end: 20120104
  3. GRANISETRON HYDROCHLORIDE [Concomitant]
     Indication: PREMEDICATION
     Dosage: UNK
     Route: 042
     Dates: start: 20120104, end: 20120104
  4. DEXAMETHASONE SODIUM PHOSPHATE [Concomitant]
     Indication: PREMEDICATION
     Dosage: UNK
     Dates: start: 20120104, end: 20120104
  5. PANVITAN                           /00466101/ [Concomitant]
     Dosage: 1 G, QD
     Dates: start: 20111228
  6. EMEND [Concomitant]
     Indication: PREMEDICATION
     Dosage: 125 MG, UNK
     Route: 048
     Dates: start: 20120104, end: 20120104

REACTIONS (1)
  - ANAPHYLACTIC REACTION [None]
